FAERS Safety Report 15325531 (Version 2)
Quarter: 2018Q4

REPORT INFORMATION
  Report Type: Spontaneous
  Country: JP (occurrence: JP)
  Receive Date: 20180828
  Receipt Date: 20181001
  Transmission Date: 20190204
  Serious: Yes (Other)
  Sender: FDA-Public Use
  Company Number: JP-PFIZER INC-2018330032

PATIENT
  Age: 92 Year
  Sex: Female

DRUGS (8)
  1. LYRICA [Suspect]
     Active Substance: PREGABALIN
     Dosage: 75 MG, 2X/DAY (IN THE MORNING AND EVENING)
     Route: 048
     Dates: start: 20180802
  2. DEPAS [Concomitant]
     Active Substance: ETIZOLAM
  3. LYRICA [Suspect]
     Active Substance: PREGABALIN
     Indication: SPINAL COLUMN STENOSIS
     Dosage: 25 MG, 1X/DAY (IN THE EVENING)
     Route: 048
  4. LYRICA [Suspect]
     Active Substance: PREGABALIN
     Dosage: 100 MG, DAILY
     Route: 048
  5. NEUROTROPIN [Concomitant]
     Active Substance: NEUROTROPIN
     Dosage: UNK UNK, 2X/DAY (IN THE MORNING AND  THE EVENING)
  6. LYRICA [Suspect]
     Active Substance: PREGABALIN
     Dosage: 25 MG, 1X/DAY (IN THE EVENING)
  7. LYRICA [Suspect]
     Active Substance: PREGABALIN
     Dosage: 25 MG, 2X/DAY (IN THE MORNING AND EVENING)
     Route: 048
  8. OPALMON [Concomitant]
     Active Substance: LIMAPROST
     Dosage: 5 MG, 3X/DAY

REACTIONS (8)
  - Loss of consciousness [Not Recovered/Not Resolved]
  - Cataract [Unknown]
  - Somnolence [Recovered/Resolved]
  - Drug ineffective [Unknown]
  - Asthenia [Unknown]
  - Photophobia [Unknown]
  - Disorientation [Not Recovered/Not Resolved]
  - Memory impairment [Not Recovered/Not Resolved]

NARRATIVE: CASE EVENT DATE: 201808
